FAERS Safety Report 6733104-9 (Version None)
Quarter: 2010Q2

REPORT INFORMATION
  Report Type: 
  Country: None (occurrence: None)
  Receive Date: 20100518
  Receipt Date: 20100503
  Transmission Date: 20101027
  Serious: Yes (Hospitalization)
  Sender: FDA-Public Use
  Company Number: 2009AC000195

PATIENT
  Age: 69 Year
  Sex: Male

DRUGS (87)
  1. DIGOXIN [Suspect]
     Indication: CARDIAC DISORDER
     Dosage: 0.125 MG;QD;PO
     Route: 048
  2. DIGOXIN [Suspect]
     Indication: ATRIAL FIBRILLATION
     Dosage: 0.25 MG;QD;PO
     Route: 048
     Dates: start: 20030501, end: 20070309
  3. DIGOXIN [Suspect]
     Indication: ATRIAL FIBRILLATION
     Dosage: 0.125 MG;QD;PO
     Route: 048
     Dates: start: 20070310
  4. FUROSEMIDE [Concomitant]
  5. FLUTICASONE PROPIONATE [Concomitant]
  6. VERAPAMIL [Concomitant]
  7. OMEPRAZOLE [Concomitant]
  8. INSULIN [Concomitant]
  9. MULTI-VITAMIN [Concomitant]
  10. AMITRIPTYLINE [Concomitant]
  11. .................... [Concomitant]
  12. ................... [Concomitant]
  13. LOVASTATIN [Concomitant]
  14. .................. [Concomitant]
  15. LEVEMIR [Concomitant]
  16. BISOPROLOL [Concomitant]
  17. CARTIA XT [Concomitant]
  18. FIBER [Concomitant]
  19. FLOMAX [Concomitant]
  20. HYDROCHLOROTHIAZIDE [Concomitant]
  21. HUMALOG [Concomitant]
  22. POTASSIUM CHLORIDE [Concomitant]
  23. PRILOSEC [Concomitant]
  24. ........................ [Concomitant]
  25. .............................. [Concomitant]
  26. .................. [Concomitant]
  27. ASPIRIN [Concomitant]
  28. ....................... [Concomitant]
  29. .......... [Concomitant]
  30. LASIX [Concomitant]
  31. CARDIZEM [Concomitant]
  32. METOPROLOL [Concomitant]
  33. COUMADIN [Concomitant]
  34. ............ [Concomitant]
  35. METOPROLOL [Concomitant]
  36. ................ [Concomitant]
  37. LOVASTATIN [Concomitant]
  38. ...................... [Concomitant]
  39. .......................... [Concomitant]
  40. ..................... [Concomitant]
  41. ........................ [Concomitant]
  42. ZOCOR [Concomitant]
  43. PRILOSEC [Concomitant]
  44. VASOTEC [Concomitant]
  45. ...................... [Concomitant]
  46. LANTUS [Concomitant]
  47. COREG [Concomitant]
  48. LOVENOX [Concomitant]
  49. ULTRAM [Concomitant]
  50. ACTOS [Concomitant]
  51. SAW PALMETTO [Concomitant]
  52. COMBIVENT [Concomitant]
  53. FAMVIR [Concomitant]
  54. ADVAIR DISKUS 100/50 [Concomitant]
  55. PROLEX DM [Concomitant]
  56. BUMEX [Concomitant]
  57. SKELAXIN [Concomitant]
  58. ACIFEX [Concomitant]
  59. ANDRODERM [Concomitant]
  60. IBUPROFEN [Concomitant]
  61. VIOXX [Concomitant]
  62. ANTIVERT [Concomitant]
  63. TRANDERM-SCOP [Concomitant]
  64. PROFEN FORTE [Concomitant]
  65. ZITHROMAX [Concomitant]
  66. NASACORT [Concomitant]
  67. AVELOX [Concomitant]
  68. BIOHIST LA [Concomitant]
  69. ATENOLOL [Concomitant]
  70. TOPROL-XL [Concomitant]
  71. SUPARTZ [Concomitant]
  72. LDIODERM PATCH [Concomitant]
  73. ELAVIL [Concomitant]
  74. ZEBETA [Concomitant]
  75. DEMADEX [Concomitant]
  76. SPIRIVA [Concomitant]
  77. VAIGRA [Concomitant]
  78. LEVITRA [Concomitant]
  79. CIALIS [Concomitant]
  80. CAVERJECT [Concomitant]
  81. ASMANEX TWISTHALER [Concomitant]
  82. AMOXICILLIN [Concomitant]
  83. VANCOMYCIN [Concomitant]
  84. UROXATRAL [Concomitant]
  85. PEPTO-BISMOL [Concomitant]
  86. FLAGYL [Concomitant]
  87. PEP [Concomitant]

REACTIONS (72)
  - ABDOMINAL HERNIA [None]
  - ADRENAL ADENOMA [None]
  - ADRENOMEGALY [None]
  - ANDROGEN DEFICIENCY [None]
  - ANXIETY [None]
  - AORTIC ANEURYSM [None]
  - AORTIC ARTERIOSCLEROSIS [None]
  - AORTIC STENOSIS [None]
  - ARTHRALGIA [None]
  - ATRIAL FIBRILLATION [None]
  - ATRIOVENTRICULAR BLOCK FIRST DEGREE [None]
  - BARRETT'S OESOPHAGUS [None]
  - BENIGN PROSTATIC HYPERPLASIA [None]
  - BLOOD GLUCOSE DECREASED [None]
  - BUNDLE BRANCH BLOCK RIGHT [None]
  - CARDIAC FAILURE CONGESTIVE [None]
  - CARDIOVASCULAR DISORDER [None]
  - CELLULITIS [None]
  - CEREBRAL CALCIFICATION [None]
  - CHOLECYSTECTOMY [None]
  - CHRONIC OBSTRUCTIVE PULMONARY DISEASE [None]
  - COLONIC POLYP [None]
  - CONDITION AGGRAVATED [None]
  - CORONARY ARTERY DISEASE [None]
  - DEHYDRATION [None]
  - DEPRESSION [None]
  - DIABETES MELLITUS [None]
  - DIABETES MELLITUS INADEQUATE CONTROL [None]
  - DRUG LEVEL BELOW THERAPEUTIC [None]
  - DUODENAL NEOPLASM [None]
  - ERECTILE DYSFUNCTION [None]
  - FAECES DISCOLOURED [None]
  - GENITAL HERPES [None]
  - HAEMORRHOIDS [None]
  - HYPERLIPIDAEMIA [None]
  - HYPERTRIGLYCERIDAEMIA [None]
  - HYPOGLYCAEMIA [None]
  - HYPOTENSION [None]
  - INCORRECT DOSE ADMINISTERED [None]
  - INSOMNIA [None]
  - LIBIDO DECREASED [None]
  - LIPOMA [None]
  - LOSS OF CONSCIOUSNESS [None]
  - MITRAL VALVE CALCIFICATION [None]
  - MITRAL VALVE INCOMPETENCE [None]
  - MYOCARDIAL ISCHAEMIA [None]
  - NASAL CONGESTION [None]
  - NEUROPATHY PERIPHERAL [None]
  - NOCTURIA [None]
  - NORMOCHROMIC NORMOCYTIC ANAEMIA [None]
  - OBESITY [None]
  - OESOPHAGEAL ULCER [None]
  - ONYCHOMYCOSIS [None]
  - OROPHARYNGEAL PAIN [None]
  - OSTEOARTHRITIS [None]
  - PERIPHERAL VASCULAR DISORDER [None]
  - POSTNASAL DRIP [None]
  - PROTHROMBIN TIME PROLONGED [None]
  - PULMONARY CONGESTION [None]
  - RENAL CYST [None]
  - RESPIRATORY DISTRESS [None]
  - RHINITIS ALLERGIC [None]
  - ROTATOR CUFF SYNDROME [None]
  - SINUS BRADYCARDIA [None]
  - SINUS HEADACHE [None]
  - SLEEP APNOEA SYNDROME [None]
  - TINNITUS [None]
  - TREATMENT NONCOMPLIANCE [None]
  - TRICUSPID VALVE INCOMPETENCE [None]
  - VASCULAR CALCIFICATION [None]
  - VENTRICULAR EXTRASYSTOLES [None]
  - VERTIGO [None]
